FAERS Safety Report 6524129-7 (Version None)
Quarter: 2009Q4

REPORT INFORMATION
  Report Type: 
  Country: None (occurrence: None)
  Receive Date: 20091231
  Receipt Date: 20091221
  Transmission Date: 20100525
  Serious: Yes (Hospitalization)
  Sender: FDA-Public Use
  Company Number: US-ABBOTT-09P-163-0615968-00

PATIENT
  Sex: Female
  Weight: 45.4 kg

DRUGS (2)
  1. HUMIRA [Suspect]
     Indication: COLITIS ULCERATIVE
     Route: 058
     Dates: start: 20090901, end: 20091001
  2. HUMIRA [Suspect]
     Route: 058
     Dates: start: 20091001

REACTIONS (3)
  - COLITIS ULCERATIVE [None]
  - CYSTITIS [None]
  - MUSCLE SPASMS [None]
